FAERS Safety Report 14169792 (Version 1)
Quarter: 2017Q4

REPORT INFORMATION
  Report Type: Spontaneous
  Country: US (occurrence: None)
  Receive Date: 20171107
  Receipt Date: 20171107
  Transmission Date: 20180321
  Serious: No
  Sender: FDA-Public Use
  Company Number: None

PATIENT
  Age: 53 Year
  Sex: Female

DRUGS (1)
  1. RASUVO [Suspect]
     Active Substance: METHOTREXATE SODIUM

REACTIONS (5)
  - Oral mucosal blistering [None]
  - Skin discolouration [None]
  - Viral infection [None]
  - Oral pain [None]
  - Therapy cessation [None]

NARRATIVE: CASE EVENT DATE: 20171107
